FAERS Safety Report 7392321-8 (Version None)
Quarter: 2011Q1

REPORT INFORMATION
  Report Type: 
  Country: None (occurrence: None)
  Receive Date: 20110330
  Receipt Date: 20110330
  Transmission Date: 20110831
  Serious: Yes (Hospitalization)
  Sender: FDA-Public Use
  Company Number: None

PATIENT
  Age: 57 Year
  Sex: Male
  Weight: 84.6 kg

DRUGS (1)
  1. ALEFACEPT [Suspect]
     Indication: IMMUNOSUPPRESSION
     Dosage: 15 MG WEEKLY SUBCUTANEOUS
     Route: 058
     Dates: start: 20101119, end: 20110210

REACTIONS (3)
  - SUBCUTANEOUS ABSCESS [None]
  - CELLULITIS [None]
  - PNEUMONIA [None]
